FAERS Safety Report 10070812 (Version 1)
Quarter: 2014Q2

REPORT INFORMATION
  Report Type: Spontaneous
  Country: US (occurrence: US)
  Receive Date: 20140410
  Receipt Date: 20140410
  Transmission Date: 20141212
  Serious: No
  Sender: FDA-Public Use
  Company Number: US-EISAI INC-AP356-00601-SPO-US

PATIENT
  Age: 44 Year
  Sex: Female

DRUGS (2)
  1. BELVIQ (LORCASERIN HYDROCHLORIDE) [Suspect]
     Indication: WEIGHT DECREASED
     Route: 048
     Dates: start: 201311, end: 201401
  2. MOOD MEDICATION [Concomitant]

REACTIONS (1)
  - Depression [Recovered/Resolved]
